FAERS Safety Report 9321407 (Version 1)
Quarter: 2013Q2

REPORT INFORMATION
  Report Type: Spontaneous
  Country: JP (occurrence: None)
  Receive Date: 20130528
  Receipt Date: 20130528
  Transmission Date: 20140414
  Serious: Yes (Life-Threatening)
  Sender: FDA-Public Use
  Company Number: JP-1198329

PATIENT
  Age: 77 Year
  Sex: Female

DRUGS (1)
  1. FLUORESCITE 10 % INJECTION (FLUORESCITE 10%) [Suspect]
     Indication: ANGIOGRAM RETINA
     Route: 040
     Dates: start: 20130419, end: 20130419

REACTIONS (3)
  - Anaphylactic shock [None]
  - Decreased appetite [None]
  - Pulse absent [None]
